FAERS Safety Report 14368563 (Version 8)
Quarter: 2018Q2

REPORT INFORMATION
  Report Type: Report from Study
  Country: US (occurrence: US)
  Receive Date: 20180109
  Receipt Date: 20180525
  Transmission Date: 20180711
  Serious: Yes (Hospitalization)
  Sender: FDA-Public Use
  Company Number: US-ACTELION-A-NJ2018-165418

PATIENT
  Age: 62 Year
  Sex: Male

DRUGS (25)
  1. ADEMPAS [Concomitant]
     Active Substance: RIOCIGUAT
     Dosage: UNK
     Dates: start: 20160511, end: 20180420
  2. FINASTERIDE. [Concomitant]
     Active Substance: FINASTERIDE
  3. MIDODRINE [Concomitant]
     Active Substance: MIDODRINE
  4. SPIRIVA [Concomitant]
     Active Substance: TIOTROPIUM BROMIDE MONOHYDRATE
  5. ALDACTONE [Concomitant]
     Active Substance: SPIRONOLACTONE
  6. UPTRAVI [Suspect]
     Active Substance: SELEXIPAG
     Indication: PULMONARY ARTERIAL HYPERTENSION
     Dosage: 1000 MCG, BID
     Route: 048
     Dates: end: 20180420
  7. UPTRAVI [Suspect]
     Active Substance: SELEXIPAG
     Dosage: 1400 MCG, UNK
     Route: 048
     Dates: start: 20170726
  8. MIRALAX [Concomitant]
     Active Substance: POLYETHYLENE GLYCOL 3350
  9. COLACE [Concomitant]
     Active Substance: DOCUSATE SODIUM
  10. TRAZODONE [Concomitant]
     Active Substance: TRAZODONE HYDROCHLORIDE
  11. SYMBICORT [Concomitant]
     Active Substance: BUDESONIDE\FORMOTEROL FUMARATE DIHYDRATE
  12. CARVEDILOL. [Concomitant]
     Active Substance: CARVEDILOL
  13. ATORVASTATIN [Concomitant]
     Active Substance: ATORVASTATIN
  14. TAMSULOZIN [Concomitant]
  15. UPTRAVI [Suspect]
     Active Substance: SELEXIPAG
     Dosage: 200 MCG, UNK
     Route: 048
     Dates: start: 20160502
  16. VITAMIN C [Concomitant]
     Active Substance: ASCORBIC ACID
  17. MULTIVITAMIN [Concomitant]
     Active Substance: VITAMINS
     Dosage: UNK
     Dates: start: 20170726
  18. BUMETANIDE. [Concomitant]
     Active Substance: BUMETANIDE
  19. NEURONTIN [Concomitant]
     Active Substance: GABAPENTIN
  20. NOVOLOG [Concomitant]
     Active Substance: INSULIN ASPART
  21. OPSUMIT [Suspect]
     Active Substance: MACITENTAN
     Indication: PULMONARY ARTERIAL HYPERTENSION
     Dosage: 10 MG, QD
     Route: 048
     Dates: start: 20151225
  22. VITAMIN E [Concomitant]
     Active Substance: .ALPHA.-TOCOPHEROL
  23. VITAMIN B COMPLEX [Concomitant]
     Active Substance: CYANOCOBALAMIN\DEXPANTHENOL\NIACINAMIDE\PYRIDOXINE HYDROCHLORIDE\RIBOFLAVIN 5^-PHOSPHATE SODIUM\THIAMINE HYDROCHLORIDE\VITAMIN B COMPLEX
  24. TUMS [Concomitant]
     Active Substance: CALCIUM CARBONATE
  25. SILDENAFIL. [Concomitant]
     Active Substance: SILDENAFIL

REACTIONS (13)
  - Cardiac failure congestive [Not Recovered/Not Resolved]
  - Pyrexia [Not Recovered/Not Resolved]
  - Dyspnoea [Not Recovered/Not Resolved]
  - Flank pain [Unknown]
  - Fluid retention [Unknown]
  - Cardiac failure [Not Recovered/Not Resolved]
  - Constipation [Unknown]
  - Sepsis [Not Recovered/Not Resolved]
  - Aspiration pleural cavity [Unknown]
  - Therapy non-responder [Unknown]
  - Pulmonary oedema [Unknown]
  - Peripheral swelling [Unknown]
  - Drug dose omission [Unknown]

NARRATIVE: CASE EVENT DATE: 20171229
